FAERS Safety Report 6195300-1 (Version None)
Quarter: 2009Q2

REPORT INFORMATION
  Report Type: 
  Country: None (occurrence: None)
  Receive Date: 20090519
  Receipt Date: 20090507
  Transmission Date: 20091009
  Serious: Yes (Hospitalization)
  Sender: FDA-Public Use
  Company Number: ES-ELI_LILLY_AND_COMPANY-ES200905002053

PATIENT
  Age: 77 Year
  Sex: Male

DRUGS (3)
  1. FORTEO [Suspect]
     Indication: OSTEOPOROSIS
     Dosage: 20 UG, UNK
     Route: 058
     Dates: start: 20071201
  2. VENTOLIN [Concomitant]
  3. VITAMINS [Concomitant]

REACTIONS (2)
  - BRONCHIAL DISORDER [None]
  - NASOPHARYNGITIS [None]
